FAERS Safety Report 11415217 (Version 2)
Quarter: 2015Q3

REPORT INFORMATION
  Report Type: Spontaneous
  Country: BR (occurrence: BR)
  Receive Date: 20150825
  Receipt Date: 20150828
  Transmission Date: 20151125
  Serious: Yes (Death, Hospitalization)
  Sender: FDA-Public Use
  Company Number: BR-ROCHE-1624919

PATIENT
  Age: 87 Year
  Sex: Female

DRUGS (7)
  1. SIMVASTATIN. [Concomitant]
     Active Substance: SIMVASTATIN
     Route: 065
  2. AAS [Concomitant]
     Active Substance: ASPIRIN
     Route: 065
  3. ANCORON [Concomitant]
     Active Substance: AMIODARONE HYDROCHLORIDE
     Dosage: 1 DAY, AS REPORTED
     Route: 065
  4. PURAN [Concomitant]
     Active Substance: LEVOTHYROXINE SODIUM
     Route: 065
  5. APRESOLINE HYDROCHLORIDE [Concomitant]
     Active Substance: HYDRALAZINE HYDROCHLORIDE
     Dosage: 1/4 UNIT DAILY, SUSPENDED
     Route: 065
  6. ROCEFIN [Suspect]
     Active Substance: CEFTRIAXONE SODIUM
     Indication: SEPSIS
     Route: 042
     Dates: start: 20150622, end: 20150625
  7. CLINDAMYCIN [Suspect]
     Active Substance: CLINDAMYCIN\CLINDAMYCIN PHOSPHATE
     Indication: SEPSIS
     Route: 042
     Dates: start: 20150622, end: 20150626

REACTIONS (3)
  - Rash [Recovered/Resolved]
  - Cardiac arrest [Fatal]
  - Pulseless electrical activity [Fatal]

NARRATIVE: CASE EVENT DATE: 20150707
